FAERS Safety Report 10157206 (Version 1)
Quarter: 2014Q2

REPORT INFORMATION
  Report Type: Spontaneous
  Country: IT (occurrence: IT)
  Receive Date: 20140507
  Receipt Date: 20140507
  Transmission Date: 20141212
  Serious: Yes (Other)
  Sender: FDA-Public Use
  Company Number: IT-TEVA-479033ISR

PATIENT
  Sex: Male

DRUGS (1)
  1. CIPROFLOXACINA RATIOPHARM 500 MG [Suspect]
     Indication: URETHRITIS

REACTIONS (2)
  - Ototoxicity [Not Recovered/Not Resolved]
  - Product substitution issue [Not Recovered/Not Resolved]
